FAERS Safety Report 4399845-6 (Version None)
Quarter: 2004Q3

REPORT INFORMATION
  Report Type: 
  Country: None (occurrence: None)
  Receive Date: 20040714
  Receipt Date: 20030929
  Transmission Date: 20050211
  Serious: Yes (Death)
  Sender: FDA-Public Use
  Company Number: M2004-0851

PATIENT
  Age: 59 Year
  Sex: Male

DRUGS (7)
  1. INDOMETHACIN 25MG CAP [Suspect]
     Indication: PERICARDITIS
     Dosage: 50 MG PRN
     Dates: start: 20020717, end: 20020815
  2. PREDNISOLONE [Concomitant]
  3. PANCREATIN [Concomitant]
  4. LANSOPRAZOLE [Concomitant]
  5. CALCIUM/VIT D [Concomitant]
  6. FOLIC ACID [Concomitant]
  7. LOMOTIL [Concomitant]

REACTIONS (2)
  - BONE MARROW DEPRESSION [None]
  - NEUTROPENIC SEPSIS [None]
